FAERS Safety Report 6256701-6 (Version None)
Quarter: 2009Q3

REPORT INFORMATION
  Report Type: 
  Country: None (occurrence: None)
  Receive Date: 20090706
  Receipt Date: 20090629
  Transmission Date: 20100115
  Serious: Yes (Hospitalization)
  Sender: FDA-Public Use
  Company Number: US-BIOGENIDEC-2009BI010459

PATIENT
  Age: 48 Year
  Sex: Female
  Weight: 61 kg

DRUGS (3)
  1. TYSABRI [Suspect]
     Indication: MULTIPLE SCLEROSIS
     Route: 042
     Dates: start: 20050101, end: 20050201
  2. TYSABRI [Suspect]
     Route: 042
     Dates: start: 20060101, end: 20090201
  3. TYSABRI [Suspect]
     Route: 042
     Dates: start: 20090501

REACTIONS (4)
  - ARTHRALGIA [None]
  - CYSTITIS [None]
  - HYSTERECTOMY [None]
  - UTERINE ENLARGEMENT [None]
